FAERS Safety Report 21348672 (Version 4)
Quarter: 2025Q1

REPORT INFORMATION
  Report Type: Report from Study
  Country: US (occurrence: US)
  Receive Date: 20220919
  Receipt Date: 20250307
  Transmission Date: 20250409
  Serious: Yes (Other)
  Sender: ASTELLAS
  Company Number: US-ASTELLAS-2022US032907

PATIENT
  Age: 78 Year
  Sex: Male
  Weight: 78 kg

DRUGS (3)
  1. ENZALUTAMIDE [Suspect]
     Active Substance: ENZALUTAMIDE
     Indication: Prostate cancer
     Dosage: 160 MG, ONCE DAILY
     Route: 048
  2. ENZALUTAMIDE [Suspect]
     Active Substance: ENZALUTAMIDE
     Dosage: 160 MG, ONCE DAILY
     Route: 048
     Dates: start: 20230224
  3. ENZALUTAMIDE [Suspect]
     Active Substance: ENZALUTAMIDE
     Route: 048

REACTIONS (5)
  - Neuropathy peripheral [Recovering/Resolving]
  - Fall [Unknown]
  - Memory impairment [Unknown]
  - Pain in extremity [Unknown]
  - Pain [Unknown]

NARRATIVE: CASE EVENT DATE: 20210101
